FAERS Safety Report 14704070 (Version 2)
Quarter: 2018Q2

REPORT INFORMATION
  Report Type: Spontaneous
  Country: US (occurrence: US)
  Receive Date: 20180402
  Receipt Date: 20180622
  Transmission Date: 20180711
  Serious: No
  Sender: FDA-Public Use
  Company Number: US-BIOGEN-2018BI00548126

PATIENT
  Sex: Male

DRUGS (1)
  1. TYSABRI [Suspect]
     Active Substance: NATALIZUMAB
     Indication: MULTIPLE SCLEROSIS
     Route: 065
     Dates: start: 20101217, end: 20141124

REACTIONS (5)
  - Anxiety [Unknown]
  - Balance disorder [Recovered/Resolved]
  - Malaise [Recovered/Resolved]
  - Memory impairment [Unknown]
  - Emotional disorder [Recovered/Resolved]
